FAERS Safety Report 10280253 (Version 2)
Quarter: 2014Q3

REPORT INFORMATION
  Report Type: Spontaneous
  Country: GB (occurrence: None)
  Receive Date: 20140701
  Receipt Date: 20140801
  Transmission Date: 20150326
  Serious: Yes (Disabling)
  Sender: FDA-Public Use
  Company Number: SYM-2014-21464

PATIENT
  Age: 91 Year
  Sex: Female
  Weight: 58 kg

DRUGS (5)
  1. VISUDYNE [Suspect]
     Active Substance: VERTEPORFIN
     Indication: AGE-RELATED MACULAR DEGENERATION
     Route: 031
     Dates: start: 20140218
  2. DILTIAZEM [Concomitant]
     Active Substance: DILTIAZEM
  3. ASPIRIN (ACETYLSALICYLIC ACID) (ACETYLSALICYLIC ACID) [Concomitant]
     Active Substance: ASPIRIN
  4. SERTRALINE [Concomitant]
     Active Substance: SERTRALINE HYDROCHLORIDE
  5. ICAPS (VITAMINS NOS) (VITAMINS NOS) [Concomitant]

REACTIONS (2)
  - Product quality issue [None]
  - Visual acuity reduced [None]

NARRATIVE: CASE EVENT DATE: 20140218
